FAERS Safety Report 8539248-3 (Version None)
Quarter: 2012Q3

REPORT INFORMATION
  Report Type: 
  Country: None (occurrence: None)
  Receive Date: 20120726
  Receipt Date: 20120720
  Transmission Date: 20120928
  Serious: Yes (Other)
  Sender: FDA-Public Use
  Company Number: US-INCYTE CORPORATION-2012IN001339

PATIENT
  Sex: Male

DRUGS (2)
  1. TYLENOL [Concomitant]
  2. JAKAFI [Suspect]
     Indication: MYELOFIBROSIS
     Dosage: 5 MG, BID
     Route: 048
     Dates: start: 20120628

REACTIONS (2)
  - CARDIOMEGALY [None]
  - INTERVERTEBRAL DISC PROTRUSION [None]
